FAERS Safety Report 5823939-9 (Version None)
Quarter: 2008Q3

REPORT INFORMATION
  Report Type: 
  Country: None (occurrence: None)
  Receive Date: 20080724
  Receipt Date: 20080709
  Transmission Date: 20090109
  Serious: Yes (Hospitalization)
  Sender: FDA-Public Use
  Company Number: 236069J08USA

PATIENT
  Age: 39 Year
  Sex: Female
  Weight: 92.9874 kg

DRUGS (6)
  1. REBIF [Suspect]
     Indication: MULTIPLE SCLEROSIS
     Dosage: 44 MCG, 3 IN 1 WEEKS, SUBCUTANEOUS, 44 MCG, 3 IN 1 WEEKS, SUBCUTANEOUS
     Route: 058
     Dates: start: 20071010, end: 20080101
  2. REBIF [Suspect]
     Indication: MULTIPLE SCLEROSIS
     Dosage: 44 MCG, 3 IN 1 WEEKS, SUBCUTANEOUS, 44 MCG, 3 IN 1 WEEKS, SUBCUTANEOUS
     Route: 058
     Dates: start: 20080101
  3. PROZAC [Concomitant]
  4. TRIAMTERENE/HYDROCHLOROTHIAZIDE (DYAZIDE) [Concomitant]
  5. OMEPRAZOLE [Concomitant]
  6. CALCIUM (CALCIUM-SANDOZ) [Concomitant]

REACTIONS (3)
  - CELLULITIS [None]
  - HAND FRACTURE [None]
  - TREMOR [None]
